FAERS Safety Report 15190393 (Version 1)
Quarter: 2018Q3

REPORT INFORMATION
  Report Type: Spontaneous
  Country: US (occurrence: US)
  Receive Date: 20180625
  Receipt Date: 20180625
  Transmission Date: 20181010
  Serious: No
  Sender: FDA-Public Use
  Company Number: None

PATIENT
  Age: 32 Year
  Sex: Female

DRUGS (1)
  1. SIMPONI ARIA [Suspect]
     Active Substance: GOLIMUMAB
     Dosage: ?          OTHER FREQUENCY:OTHER;?
     Route: 042

REACTIONS (5)
  - Dyspnoea [None]
  - Chest discomfort [None]
  - Chest pain [None]
  - Visual impairment [None]
  - Disease progression [None]

NARRATIVE: CASE EVENT DATE: 20180625
